FAERS Safety Report 23061709 (Version 1)
Quarter: 2023Q4

REPORT INFORMATION
  Report Type: Spontaneous
  Country: US (occurrence: US)
  Receive Date: 20231013
  Receipt Date: 20231013
  Transmission Date: 20240109
  Serious: No
  Sender: FDA-Public Use
  Company Number: US-JNJFOC-20231022407

PATIENT
  Age: 30 Year
  Weight: 83 kg

DRUGS (2)
  1. CONCERTA [Suspect]
     Active Substance: METHYLPHENIDATE HYDROCHLORIDE
     Indication: Product used for unknown indication
     Route: 065
  2. VYVANSE [Suspect]
     Active Substance: LISDEXAMFETAMINE DIMESYLATE
     Indication: Attention deficit hyperactivity disorder
     Route: 065

REACTIONS (9)
  - Stress [Unknown]
  - Weight fluctuation [Unknown]
  - Product availability issue [Unknown]
  - Frustration tolerance decreased [Unknown]
  - Heart rate irregular [Unknown]
  - Heart rate increased [Unknown]
  - Nightmare [Unknown]
  - Drug ineffective [Unknown]
  - Intentional product use issue [Unknown]
